FAERS Safety Report 9865582 (Version 1)
Quarter: 2014Q1

REPORT INFORMATION
  Report Type: Spontaneous
  Country: US (occurrence: US)
  Receive Date: 20140203
  Receipt Date: 20140203
  Transmission Date: 20141002
  Serious: No
  Sender: FDA-Public Use
  Company Number: US-009507513-1401USA007205

PATIENT
  Sex: Female

DRUGS (2)
  1. MIRALAX [Suspect]
     Indication: CONSTIPATION
     Dosage: 1 SCOOP, QD
     Route: 048
     Dates: start: 20131225
  2. MINERAL OIL [Concomitant]
     Indication: CONSTIPATION
     Dosage: 2 TSP, UNKNOWN
     Dates: start: 20131225

REACTIONS (1)
  - Drug ineffective [Unknown]
